FAERS Safety Report 9578955 (Version 1)
Quarter: 2013Q4

REPORT INFORMATION
  Report Type: Spontaneous
  Country: US (occurrence: US)
  Receive Date: 20131001
  Receipt Date: 20131001
  Transmission Date: 20140711
  Serious: No
  Sender: FDA-Public Use
  Company Number: US-AMGEN-USASP2013015519

PATIENT
  Sex: Female
  Weight: 70.3 kg

DRUGS (12)
  1. ENBREL [Suspect]
     Indication: RHEUMATOID ARTHRITIS
     Dosage: 50 MG, QWK
     Route: 058
  2. CELEBREX [Concomitant]
     Dosage: 200 MG, UNK
  3. PAXIL                              /00500401/ [Concomitant]
     Dosage: 30 MG, UNK
  4. TYLENOL W/CODEINE NO. 3 [Concomitant]
     Dosage: UNK
  5. METHOTREXATE [Concomitant]
     Dosage: 2.5 MG, UNK
  6. VICODIN [Concomitant]
     Dosage: 5-300 MG
  7. ADDERALL [Concomitant]
     Dosage: 10 MG, UNK
  8. PEPCID AC [Concomitant]
     Dosage: 20 MG, UNK
  9. CALCIUM D                          /00944201/ [Concomitant]
     Dosage: UNK
  10. FOLIC ACID [Concomitant]
     Dosage: UNK
  11. LEVOXYL [Concomitant]
     Dosage: 125 MUG, UNK
  12. B COMPLEX                          /06817001/ [Concomitant]
     Dosage: UNK, 1 TAB

REACTIONS (3)
  - Diverticulitis [Unknown]
  - Hepatic enzyme increased [Unknown]
  - Urinary tract infection [Unknown]
